FAERS Safety Report 25336805 (Version 2)
Quarter: 2025Q2

REPORT INFORMATION
  Report Type: Spontaneous
  Country: US (occurrence: US)
  Receive Date: 20250520
  Receipt Date: 20250612
  Transmission Date: 20250717
  Serious: Yes (Other)
  Sender: AMNEAL
  Company Number: US-AMNEAL-2025-AMRX-01869

PATIENT
  Sex: Male

DRUGS (1)
  1. BACLOFEN [Suspect]
     Active Substance: BACLOFEN
     Indication: Product used for unknown indication
     Route: 037

REACTIONS (2)
  - Pocket erosion [Recovered/Resolved]
  - Pain [Recovered/Resolved]
